FAERS Safety Report 11575310 (Version 1)
Quarter: 2015Q3

REPORT INFORMATION
  Report Type: Spontaneous
  Country: US (occurrence: None)
  Receive Date: 20150929
  Receipt Date: 20150929
  Transmission Date: 20151125
  Serious: Yes (Other)
  Sender: FDA-Public Use
  Company Number: None

PATIENT
  Age: 81 Year
  Sex: Female
  Weight: 59.88 kg

DRUGS (1)
  1. GADAVIST [Suspect]
     Active Substance: GADOBUTROL
     Indication: NUCLEAR MAGNETIC RESONANCE IMAGING
     Route: 042
     Dates: start: 20150925

REACTIONS (5)
  - Hyperhidrosis [None]
  - Faeces discoloured [None]
  - Abdominal pain [None]
  - Contrast media reaction [None]
  - Loss of consciousness [None]

NARRATIVE: CASE EVENT DATE: 20150925
